FAERS Safety Report 6463685-4 (Version None)
Quarter: 2009Q4

REPORT INFORMATION
  Report Type: 
  Country: None (occurrence: None)
  Receive Date: 20091130
  Receipt Date: 20091130
  Transmission Date: 20100525
  Serious: Yes (Hospitalization)
  Sender: FDA-Public Use
  Company Number: None

PATIENT
  Age: 61 Year
  Sex: Male

DRUGS (2)
  1. CIPROFLOXACIN [Suspect]
     Indication: URINARY TRACT INFECTION
     Dosage: 500 MG BID PO
     Route: 048
     Dates: start: 20090629, end: 20090702
  2. CIPROFLOXACIN IN DEXTROSE [Suspect]
     Indication: URINARY TRACT INFECTION
     Dosage: 400 MG BID IV
     Route: 042
     Dates: start: 20090626, end: 20090629

REACTIONS (1)
  - CLOSTRIDIUM DIFFICILE COLITIS [None]
